FAERS Safety Report 19502120 (Version 1)
Quarter: 2021Q3

REPORT INFORMATION
  Report Type: Spontaneous
  Country: FR (occurrence: FR)
  Receive Date: 20210707
  Receipt Date: 20210707
  Transmission Date: 20211014
  Serious: Yes (Hospitalization)
  Sender: FDA-Public Use
  Company Number: FR-ACCORD-230767

PATIENT
  Age: 59 Year

DRUGS (1)
  1. PACLITAXEL/PACLITAXEL LIPOSOME [Suspect]
     Active Substance: PACLITAXEL
     Indication: BREAST CANCER
     Dosage: NP
     Route: 042
     Dates: start: 20210503, end: 20210503

REACTIONS (5)
  - Injection site induration [Recovering/Resolving]
  - Injection site oedema [Recovering/Resolving]
  - Injection site pain [Recovering/Resolving]
  - Extravasation [Recovered/Resolved with Sequelae]
  - Injection site erythema [Recovering/Resolving]

NARRATIVE: CASE EVENT DATE: 20210503
